FAERS Safety Report 12640255 (Version 1)
Quarter: 2016Q3

REPORT INFORMATION
  Report Type: Spontaneous
  Country: IT (occurrence: IT)
  Receive Date: 20160810
  Receipt Date: 20160810
  Transmission Date: 20161109
  Serious: Yes (Hospitalization)
  Sender: FDA-Public Use
  Company Number: IT-ACTAVISPR-2016-16798

PATIENT
  Age: 26 Year
  Sex: Male
  Weight: 80 kg

DRUGS (4)
  1. PROGESTERONE. [Suspect]
     Active Substance: PROGESTERONE
     Indication: ANDROGENETIC ALOPECIA
     Dosage: 1 %, CYCLICAL
     Route: 061
     Dates: start: 20151101, end: 20160525
  2. 17A-ESTRADIOL [Suspect]
     Active Substance: ALFATRADIOL
     Indication: ANDROGENETIC ALOPECIA
     Dosage: 0.025 %, CYCLICAL
     Route: 061
     Dates: start: 20151101, end: 20160525
  3. FINASTERIDE. [Suspect]
     Active Substance: FINASTERIDE
     Indication: ANDROGENETIC ALOPECIA
     Dosage: 1 MG, DAILY
     Route: 048
  4. MINOXIDIL. [Suspect]
     Active Substance: MINOXIDIL
     Indication: ANDROGENETIC ALOPECIA
     Dosage: 5 %, CYCLICAL
     Route: 061
     Dates: start: 20151101, end: 20160525

REACTIONS (3)
  - Cerebral infarction [Recovered/Resolved with Sequelae]
  - Off label use [None]
  - Superior sagittal sinus thrombosis [None]

NARRATIVE: CASE EVENT DATE: 20160525
